FAERS Safety Report 4476993-3 (Version None)
Quarter: 2004Q4

REPORT INFORMATION
  Report Type: 
  Country: None (occurrence: None)
  Receive Date: 20041013
  Receipt Date: 20041005
  Transmission Date: 20050328
  Serious: Yes (Other)
  Sender: FDA-Public Use
  Company Number: CIP04002161

PATIENT
  Age: 64 Year
  Sex: Female

DRUGS (1)
  1. ACTONEL [Suspect]
     Indication: BONE DENSITY DECREASED
     Dosage: 35 MG ONCE WEEKLY, ORAL
     Route: 048

REACTIONS (3)
  - EYE PAIN [None]
  - PERIORBITAL DISORDER [None]
  - SUTURE RUPTURE [None]
